FAERS Safety Report 4498005-8 (Version None)
Quarter: 2004Q4

REPORT INFORMATION
  Report Type: 
  Country: None (occurrence: None)
  Receive Date: 20041109
  Receipt Date: 20041109
  Transmission Date: 20050328
  Serious: Yes (Hospitalization)
  Sender: FDA-Public Use
  Company Number: None

PATIENT
  Age: 69 Year
  Sex: Male
  Weight: 80.7403 kg

DRUGS (15)
  1. ASPIRIN [Suspect]
     Dosage: 81 MG DAILY
     Dates: end: 20040922
  2. PLAVIX [Suspect]
     Dosage: 75 MG
     Dates: start: 20030627, end: 20040917
  3. PLAVIX [Concomitant]
  4. DEPAKOTE [Concomitant]
  5. NITROGLYCERIN [Concomitant]
  6. NITROGLYCERN [Concomitant]
  7. HYDROCHLOROTHIAZIDE [Concomitant]
  8. IRBESARTAN [Concomitant]
  9. FELODIPINE [Concomitant]
  10. METOPROLOL [Concomitant]
  11. SIMVASTATIN [Concomitant]
  12. LEVOTHYROXINE SODIUM [Concomitant]
  13. ASPIRIN [Concomitant]
  14. VITAMIN C [Concomitant]
  15. MULTIVITAMIN [Concomitant]

REACTIONS (9)
  - ANGINA PECTORIS [None]
  - CAROTID ARTERY STENOSIS [None]
  - DISEASE RECURRENCE [None]
  - DYSPNOEA [None]
  - HYPOAESTHESIA [None]
  - LOWER GASTROINTESTINAL HAEMORRHAGE [None]
  - MIGRAINE [None]
  - POLYP [None]
  - SPEECH DISORDER [None]
